FAERS Safety Report 10866483 (Version 2)
Quarter: 2015Q1

REPORT INFORMATION
  Report Type: Spontaneous
  Country: US (occurrence: None)
  Receive Date: 20150220
  Receipt Date: 20150224
  Transmission Date: 20150721
  Serious: Yes (Other)
  Sender: FDA-Public Use
  Company Number: ADR-2015-00348

PATIENT
  Age: 61 Year
  Sex: Male

DRUGS (1)
  1. BACLOFEN INTRATHECAL [Suspect]
     Active Substance: BACLOFEN
     Indication: MUSCLE SPASTICITY

REACTIONS (10)
  - Infusion site granuloma [None]
  - Tethered cord syndrome [None]
  - Device kink [None]
  - Cauda equina syndrome [None]
  - Drug ineffective [None]
  - Muscle spasticity [None]
  - Device failure [None]
  - Disease recurrence [None]
  - Device connection issue [None]
  - Hypertonia [None]
